FAERS Safety Report 18872172 (Version 2)
Quarter: 2021Q1

REPORT INFORMATION
  Report Type: Spontaneous
  Country: US (occurrence: US)
  Receive Date: 20210210
  Receipt Date: 20210223
  Transmission Date: 20210420
  Serious: Yes (Other)
  Sender: FDA-Public Use
  Company Number: US-BAYER-2021-050704

PATIENT
  Age: 20 Year
  Sex: Female

DRUGS (2)
  1. MIRENA [Suspect]
     Active Substance: LEVONORGESTREL
     Indication: MENORRHAGIA
  2. MIRENA [Suspect]
     Active Substance: LEVONORGESTREL
     Indication: CONTRACEPTION
     Dosage: 20 ?G PER DAY CONTINUOUSLY
     Route: 015
     Dates: start: 201810

REACTIONS (4)
  - Vaginal haemorrhage [Recovered/Resolved]
  - Abdominal pain lower [Not Recovered/Not Resolved]
  - Genital haemorrhage [Recovered/Resolved]
  - Amenorrhoea [Recovered/Resolved]

NARRATIVE: CASE EVENT DATE: 202102
